FAERS Safety Report 24736425 (Version 1)
Quarter: 2024Q4

REPORT INFORMATION
  Report Type: Spontaneous
  Country: CN (occurrence: CN)
  Receive Date: 20241216
  Receipt Date: 20241216
  Transmission Date: 20250115
  Serious: Yes (Hospitalization)
  Sender: SANOFI AVENTIS
  Company Number: CN-SA-2024SA366440

PATIENT
  Age: 71 Year
  Sex: Female
  Weight: 54 kg

DRUGS (3)
  1. INSULIN GLARGINE [Suspect]
     Active Substance: INSULIN GLARGINE
     Indication: Type 2 diabetes mellitus
     Dosage: 20 IU, QD
     Route: 058
     Dates: start: 20241114, end: 20241119
  2. Isophane protamine recombinant human insulin [Concomitant]
     Indication: Type 2 diabetes mellitus
     Dosage: 12 IU BID
     Route: 058
     Dates: start: 20241114, end: 20241119
  3. Isophane protamine recombinant human insulin [Concomitant]
     Dosage: 12 U BEFORE BREAKFAST, 12 U BEFORE LUNCH, AND 13 U BEFORE DINNER)
     Route: 058
     Dates: start: 20241119

REACTIONS (5)
  - Fluid retention [Recovering/Resolving]
  - Swelling face [Recovering/Resolving]
  - Sodium retention [Recovering/Resolving]
  - Blood glucose fluctuation [Not Recovered/Not Resolved]
  - Peripheral swelling [Recovering/Resolving]

NARRATIVE: CASE EVENT DATE: 20241117
